FAERS Safety Report 4848376-5 (Version None)
Quarter: 2005Q4

REPORT INFORMATION
  Report Type: 
  Country: None (occurrence: None)
  Receive Date: 20051208
  Receipt Date: 20051129
  Transmission Date: 20060501
  Serious: Yes (Other)
  Sender: FDA-Public Use
  Company Number: CA-ROCHE-427067

PATIENT
  Age: 62 Year
  Sex: Female

DRUGS (4)
  1. TORADOL [Suspect]
     Route: 048
     Dates: start: 20010615, end: 20051115
  2. MAVIK [Concomitant]
     Indication: HYPERTENSION
     Dates: end: 20041015
  3. MICARDIS [Concomitant]
     Indication: HYPERTENSION
     Route: 048
     Dates: start: 20011015, end: 20051115
  4. HYDROCHLOROTHIAZIDE [Concomitant]
     Indication: HYPERTENSION
     Route: 048

REACTIONS (1)
  - BLOOD CREATINE PHOSPHOKINASE INCREASED [None]
